FAERS Safety Report 5890573-4 (Version None)
Quarter: 2008Q3

REPORT INFORMATION
  Report Type: 
  Country: None (occurrence: None)
  Receive Date: 20080922
  Receipt Date: 20080919
  Transmission Date: 20090109
  Serious: Yes (Other)
  Sender: FDA-Public Use
  Company Number: TR-BRISTOL-MYERS SQUIBB COMPANY-14340558

PATIENT
  Age: 52 Year
  Sex: Male
  Weight: 70 kg

DRUGS (5)
  1. BARACLUDE [Suspect]
     Indication: HEPATITIS B
     Route: 048
     Dates: end: 20071101
  2. ALDACTONE [Concomitant]
     Dosage: TABLET.
  3. DUPHALAC [Concomitant]
     Dosage: SUSPENSION 3X1
  4. URSO FALK [Concomitant]
     Dosage: CAPSULE
  5. LANSOPRAZOLE [Concomitant]
     Dosage: TABLET

REACTIONS (3)
  - HEPATIC CIRRHOSIS [None]
  - LOSS OF CONSCIOUSNESS [None]
  - SYNCOPE [None]
